FAERS Safety Report 12682100 (Version 1)
Quarter: 2016Q3

REPORT INFORMATION
  Report Type: Spontaneous
  Country: GB (occurrence: GB)
  Receive Date: 20160824
  Receipt Date: 20160824
  Transmission Date: 20161109
  Serious: Yes (Other)
  Sender: FDA-Public Use
  Company Number: GB-009507513-1608GBR012091

PATIENT
  Age: 87 Year
  Sex: Female

DRUGS (1)
  1. CUBICIN [Suspect]
     Active Substance: DAPTOMYCIN
     Dosage: 580 MG, UNK
     Route: 042

REACTIONS (5)
  - Procedural pain [Unknown]
  - Drug dose omission [Unknown]
  - Device dislocation [Unknown]
  - Catheter site pain [Unknown]
  - Complication of device insertion [Unknown]

NARRATIVE: CASE EVENT DATE: 20160820
